FAERS Safety Report 16960765 (Version 1)
Quarter: 2019Q4

REPORT INFORMATION
  Report Type: Spontaneous
  Country: CA (occurrence: CA)
  Receive Date: 20191025
  Receipt Date: 20191025
  Transmission Date: 20200122
  Serious: Yes (Other)
  Sender: FDA-Public Use
  Company Number: CA-TEVA-2019-CA-1126422

PATIENT
  Age: 8 Year
  Sex: Female

DRUGS (5)
  1. SIROLIMUS. [Interacting]
     Active Substance: SIROLIMUS
  2. ALEMTUZUMAB [Concomitant]
     Active Substance: ALEMTUZUMAB
     Indication: BONE MARROW CONDITIONING REGIMEN
     Dosage: .2 MG/KG DAILY; SOLUTION INTRAVENOUS
     Route: 058
  3. FLUCONAZOLE. [Suspect]
     Active Substance: FLUCONAZOLE
     Indication: ANTIFUNGAL PROPHYLAXIS
     Dosage: 150 MILLIGRAM DAILY;
     Route: 065
  4. SIROLIMUS. [Interacting]
     Active Substance: SIROLIMUS
     Indication: BONE MARROW CONDITIONING REGIMEN
     Dosage: 1.4 MILLIGRAM DAILY;
     Route: 048
  5. SIROLIMUS. [Interacting]
     Active Substance: SIROLIMUS
     Indication: PROPHYLAXIS AGAINST GRAFT VERSUS HOST DISEASE
     Dosage: 1 MILLIGRAM DAILY;

REACTIONS (1)
  - Labelled drug-drug interaction medication error [Recovered/Resolved]
